FAERS Safety Report 7250625-3 (Version None)
Quarter: 2011Q1

REPORT INFORMATION
  Report Type: 
  Country: None (occurrence: None)
  Receive Date: 20110128
  Receipt Date: 20110126
  Transmission Date: 20110831
  Serious: Yes (Death, Other)
  Sender: FDA-Public Use
  Company Number: PHHY2011GB05571

PATIENT
  Age: 86 Year
  Sex: Male
  Weight: 61 kg

DRUGS (1)
  1. WARFARIN [Suspect]
     Indication: ATRIAL FIBRILLATION
     Route: 048
     Dates: start: 19920101

REACTIONS (2)
  - CEREBRAL HAEMORRHAGE [None]
  - FALL [None]
